FAERS Safety Report 8891569 (Version 1)
Quarter: 2012Q4

REPORT INFORMATION
  Report Type: 
  Country: US (occurrence: US)
  Receive Date: 20121107
  Receipt Date: 20121107
  Transmission Date: 20130627
  Serious: No
  Sender: FDA-Public Use
  Company Number: US-AMGEN-USASP2011056095

PATIENT
  Sex: Male
  Weight: 124.72 kg

DRUGS (15)
  1. ENBREL [Suspect]
     Indication: PRODUCT USED FOR UNKNOWN INDICATION
     Dosage: 50 mg, 2 times/wk
  2. SINGULAIR [Concomitant]
  3. AMBIEN [Concomitant]
  4. NASONEX [Concomitant]
  5. LORAZEPAM [Concomitant]
  6. FOLIC ACID [Concomitant]
  7. HYDROCHLOROTH [Concomitant]
  8. PHENTERMINE [Concomitant]
  9. LEVOTHROID [Concomitant]
  10. PROTOPIC [Concomitant]
  11. MULTIVITAMIN                       /00097801/ [Concomitant]
  12. FISH OIL [Concomitant]
  13. VITAMIN D /00107901/ [Concomitant]
  14. VUSION [Concomitant]
  15. FLAXSEED OIL [Concomitant]

REACTIONS (1)
  - Insomnia [Unknown]
